FAERS Safety Report 6353503-7 (Version None)
Quarter: 2009Q3

REPORT INFORMATION
  Report Type: 
  Country: None (occurrence: None)
  Receive Date: 20090912
  Receipt Date: 20090622
  Transmission Date: 20100115
  Serious: No
  Sender: FDA-Public Use
  Company Number: US-ABBOTT-08P-163-0471267-00

PATIENT
  Sex: Female
  Weight: 63.56 kg

DRUGS (5)
  1. HUMIRA [Suspect]
     Indication: PSORIASIS
     Route: 050
     Dates: start: 20080501
  2. CYANOCOBALAMIN-TANNIN COMPLEX [Concomitant]
     Indication: SUPPLEMENTATION THERAPY
     Route: 048
  3. GLUCOSAMINE W/CHONDROITIN SULFATE [Concomitant]
     Indication: ARTHROPATHY
     Route: 048
  4. ACETAMINOPHEN [Concomitant]
     Indication: PAIN
     Route: 048
  5. DAIVOBET [Concomitant]
     Indication: PSORIASIS
     Dosage: APPLY TO AFFECTED AREAS
     Route: 061

REACTIONS (4)
  - DRUG DELIVERY SYSTEM MALFUNCTION [None]
  - INCORRECT DOSE ADMINISTERED [None]
  - INJECTION SITE IRRITATION [None]
  - INJECTION SITE PAIN [None]
